FAERS Safety Report 11468448 (Version 1)
Quarter: 2015Q3

REPORT INFORMATION
  Report Type: Spontaneous
  Country: US (occurrence: None)
  Receive Date: 20150904
  Receipt Date: 20150904
  Transmission Date: 20151125
  Serious: Yes (Disabling)
  Sender: FDA-Public Use
  Company Number: None

PATIENT
  Age: 10 Month
  Sex: Male
  Weight: 9.53 kg

DRUGS (2)
  1. TYLENOL [Concomitant]
     Active Substance: ACETAMINOPHEN
  2. BABY TEETHING [Suspect]
     Active Substance: ATROPA BELLADONNA\CALCIUM PHOSPHATE\CHAMOMILE\COFFEA ARABICA FRUIT
     Indication: TEETHING
     Dosage: 2-3 TABLETS
     Dates: start: 20150821, end: 20150828

REACTIONS (2)
  - Excessive eye blinking [None]
  - Blepharospasm [None]

NARRATIVE: CASE EVENT DATE: 20150821
